FAERS Safety Report 7808986-X (Version None)
Quarter: 2011Q4

REPORT INFORMATION
  Report Type: 
  Country: None (occurrence: None)
  Receive Date: 20111007
  Receipt Date: 20110926
  Transmission Date: 20120403
  Serious: Yes (Hospitalization)
  Sender: FDA-Public Use
  Company Number: 2011-3891

PATIENT
  Age: 16 Year
  Sex: Male
  Weight: 33 kg

DRUGS (4)
  1. INCRELEX [Suspect]
     Indication: INSULIN-LIKE GROWTH FACTOR DECREASED
     Dosage: 82 UNITS (41 UNITS, 2 IN 1 D), SUBCUTANEOUS
     Route: 058
     Dates: start: 20110317
  2. URICOL (ALL OTHER THERAPEUTIC PRODUCTS) [Concomitant]
  3. INSULIN (INSULIN) [Concomitant]
  4. CELEBREX [Concomitant]

REACTIONS (2)
  - ABDOMINAL PAIN [None]
  - PORTAL SHUNT [None]
